FAERS Safety Report 11222765 (Version 1)
Quarter: 2015Q2

REPORT INFORMATION
  Report Type: Spontaneous
  Country: BR (occurrence: BR)
  Receive Date: 20150626
  Receipt Date: 20150626
  Transmission Date: 20150821
  Serious: Yes (Other)
  Sender: FDA-Public Use
  Company Number: BR-ABBVIE-15P-020-1416744-00

PATIENT
  Sex: Male
  Weight: 110 kg

DRUGS (13)
  1. ZOLPIDEM [Concomitant]
     Active Substance: ZOLPIDEM\ZOLPIDEM TARTRATE
     Indication: INSOMNIA
     Dosage: 5 MG; AT NIGHT
     Route: 048
     Dates: start: 2013
  2. AVODART [Concomitant]
     Active Substance: DUTASTERIDE
     Indication: PROSTATIC ATROPHY
     Route: 048
     Dates: start: 2007
  3. CRESTOR [Concomitant]
     Active Substance: ROSUVASTATIN CALCIUM
     Indication: BLOOD CHOLESTEROL
     Dosage: 10 MG; AT NIGHT
  4. LOSARTAN [Concomitant]
     Active Substance: LOSARTAN
     Indication: HYPERTENSION
     Dosage: 100 MG; IN THE MORNING AND AT NIGHT
     Route: 048
     Dates: start: 2002
  5. DEPAKOTE [Suspect]
     Active Substance: DIVALPROEX SODIUM
     Indication: ADVERSE DRUG REACTION
     Dosage: 500 MG; AT NIGHT
     Route: 048
     Dates: start: 2009
  6. SEROQUEL XR [Concomitant]
     Active Substance: QUETIAPINE FUMARATE
     Indication: DEPRESSION
     Route: 048
     Dates: start: 2013
  7. ACETYLSALICYLIC ACID [Concomitant]
     Active Substance: ASPIRIN
     Indication: CARDIOVASCULAR EVENT PROPHYLAXIS
     Dosage: 100 MG; AFTER LUNCH
     Route: 048
     Dates: start: 2002
  8. CLORANA [Concomitant]
     Active Substance: HYDROCHLOROTHIAZIDE
     Indication: DIURETIC THERAPY
     Route: 048
     Dates: start: 2002
  9. DULOXETINE [Concomitant]
     Active Substance: DULOXETINE
     Indication: DEPRESSION
     Dosage: 30 MG; AT NIGHT
     Route: 048
     Dates: start: 201503
  10. CRESTOR [Concomitant]
     Active Substance: ROSUVASTATIN CALCIUM
     Indication: LIPID METABOLISM DISORDER
  11. AKINETON [Suspect]
     Active Substance: BIPERIDEN HYDROCHLORIDE
     Indication: TREMOR
     Dosage: 2 MG; IN THE MORNING
     Route: 054
     Dates: start: 201505, end: 201505
  12. CLOPIDOGREL [Concomitant]
     Active Substance: CLOPIDOGREL BISULFATE
     Indication: ANTICOAGULANT THERAPY
     Route: 048
     Dates: start: 2002
  13. DILTIAZEM [Concomitant]
     Active Substance: DILTIAZEM
     Indication: HYPERTENSION
     Dosage: 60 MG; IN THE MORNING
     Route: 048
     Dates: start: 2002

REACTIONS (9)
  - Off label use [Not Recovered/Not Resolved]
  - Therapy cessation [Unknown]
  - Panic reaction [Recovered/Resolved]
  - Asphyxia [Recovered/Resolved]
  - Tremor [Not Recovered/Not Resolved]
  - Somnolence [Recovered/Resolved]
  - Feeling hot [Unknown]
  - Myocardial infarction [Unknown]
  - Jaw disorder [Not Recovered/Not Resolved]

NARRATIVE: CASE EVENT DATE: 2009
